FAERS Safety Report 25213925 (Version 3)
Quarter: 2025Q3

REPORT INFORMATION
  Report Type: Report from Study
  Country: CA (occurrence: CA)
  Receive Date: 20250418
  Receipt Date: 20250804
  Transmission Date: 20251020
  Serious: Yes (Hospitalization, Other)
  Sender: ABBVIE
  Company Number: CA-ABBVIE-6232257

PATIENT
  Sex: Male

DRUGS (1)
  1. LUPRON [Suspect]
     Active Substance: LEUPROLIDE ACETATE
     Indication: Prostate cancer
     Dosage: FORM STRENGTH: 30 MILLIGRAM?DOSE FORM : POWDER AND SOLVENT FOR SUSPENSION FOR INJECTION IN PRE-FI...
     Route: 030
     Dates: start: 20200127, end: 20250415

REACTIONS (2)
  - Arterial occlusive disease [Unknown]
  - Prostate cancer [Unknown]
